FAERS Safety Report 25749471 (Version 1)
Quarter: 2025Q3

REPORT INFORMATION
  Report Type: Spontaneous
  Country: EU (occurrence: EU)
  Receive Date: 20250902
  Receipt Date: 20250902
  Transmission Date: 20251020
  Serious: Yes (Hospitalization, Other)
  Sender: RANBAXY
  Company Number: EU-SANDOZ-SDZ2025DE031159

PATIENT
  Age: 58 Year
  Sex: Male

DRUGS (5)
  1. IMATINIB [Suspect]
     Active Substance: IMATINIB
     Indication: Chronic myeloid leukaemia
     Route: 065
  2. IMATINIB [Suspect]
     Active Substance: IMATINIB
     Indication: Mismatch repair cancer syndrome
  3. DASATINIB [Suspect]
     Active Substance: DASATINIB
     Indication: Mismatch repair cancer syndrome
     Route: 065
  4. SCEMBLIX [Suspect]
     Active Substance: ASCIMINIB HYDROCHLORIDE
     Indication: Chronic myeloid leukaemia
     Route: 065
     Dates: start: 20250213, end: 2025
  5. SCEMBLIX [Suspect]
     Active Substance: ASCIMINIB HYDROCHLORIDE
     Route: 065
     Dates: start: 20250313, end: 20250421

REACTIONS (7)
  - Coma [Not Recovered/Not Resolved]
  - Posterior reversible encephalopathy syndrome [Not Recovered/Not Resolved]
  - Diabetes mellitus [Unknown]
  - Nephropathy [Unknown]
  - Arteriosclerosis [Unknown]
  - Rhabdomyolysis [Unknown]
  - Hypertension [Unknown]

NARRATIVE: CASE EVENT DATE: 20250101
